FAERS Safety Report 8366062-4 (Version None)
Quarter: 2012Q2

REPORT INFORMATION
  Report Type: 
  Country: None (occurrence: None)
  Receive Date: 20120516
  Receipt Date: 20120516
  Transmission Date: 20120825
  Serious: No
  Sender: FDA-Public Use
  Company Number: None

PATIENT
  Age: 82 Year
  Sex: Male
  Weight: 75.7507 kg

DRUGS (2)
  1. PRADAXA [Suspect]
     Indication: CEREBROVASCULAR ACCIDENT PROPHYLAXIS
     Dosage: 75MG TWICE A DAY
     Dates: start: 20110928, end: 20120305
  2. PRADAXA [Suspect]
     Indication: ANTICOAGULANT THERAPY
     Dosage: 75MG TWICE A DAY
     Dates: start: 20110928, end: 20120305

REACTIONS (3)
  - HAEMOGLOBIN DECREASED [None]
  - MELAENA [None]
  - INTESTINAL HAEMORRHAGE [None]
